FAERS Safety Report 8806181 (Version 1)
Quarter: 2012Q4

REPORT INFORMATION
  Report Type: 
  Country: PH (occurrence: PH)
  Receive Date: 20120925
  Receipt Date: 20120925
  Transmission Date: 20130627
  Serious: Yes (Other)
  Sender: FDA-Public Use
  Company Number: PHHY2012PH082541

PATIENT

DRUGS (1)
  1. ZOMETA [Suspect]

REACTIONS (2)
  - Osteonecrosis of jaw [Unknown]
  - Oedema [Unknown]
